FAERS Safety Report 5136005-5 (Version None)
Quarter: 2006Q4

REPORT INFORMATION
  Report Type: 
  Country: None (occurrence: None)
  Receive Date: 20061020
  Receipt Date: 20061004
  Transmission Date: 20070319
  Serious: Yes (Other)
  Sender: FDA-Public Use
  Company Number: 2006125945

PATIENT
  Sex: Male

DRUGS (2)
  1. XANAX [Suspect]
     Dosage: ORAL
     Route: 048
  2. ST. JOHN'S WORT  (ST. JOHN'S WORT) [Suspect]

REACTIONS (2)
  - HYPOACUSIS [None]
  - SOMNOLENCE [None]
